FAERS Safety Report 11099097 (Version 1)
Quarter: 2015Q2

REPORT INFORMATION
  Report Type: Spontaneous
  Country: US (occurrence: None)
  Receive Date: 20150507
  Receipt Date: 20150507
  Transmission Date: 20150821
  Serious: No
  Sender: FDA-Public Use
  Company Number: None

PATIENT
  Age: 29 Year
  Sex: Male

DRUGS (1)
  1. CLOZAPINE. [Suspect]
     Active Substance: CLOZAPINE
     Indication: SCHIZOPHRENIA
     Dosage: LESS THAN 1 WEEK
     Route: 048

REACTIONS (2)
  - Dyspepsia [None]
  - Salivary hypersecretion [None]

NARRATIVE: CASE EVENT DATE: 20150415
